FAERS Safety Report 11588255 (Version 1)
Quarter: 2015Q4

REPORT INFORMATION
  Report Type: Spontaneous
  Country: US (occurrence: None)
  Receive Date: 20151001
  Receipt Date: 20151001
  Transmission Date: 20160304
  Serious: Yes (Other)
  Sender: FDA-Public Use
  Company Number: None

PATIENT
  Age: 61 Year
  Sex: Female

DRUGS (7)
  1. HUMIRA [Suspect]
     Active Substance: ADALIMUMAB
     Indication: CROHN^S DISEASE
     Dosage: 40/0.8 MG/ML; Q14D
     Route: 058
     Dates: start: 201410, end: 201509
  2. ASACOL [Concomitant]
     Active Substance: MESALAMINE
  3. UCERIS [Concomitant]
     Active Substance: BUDESONIDE
  4. FERROUS GLUCONATE [Concomitant]
     Active Substance: FERROUS GLUCONATE
  5. HUMIRA [Concomitant]
     Active Substance: ADALIMUMAB
  6. MESALAMINE. [Concomitant]
     Active Substance: MESALAMINE
  7. HYOSCYAMINE. [Concomitant]
     Active Substance: HYOSCYAMINE

REACTIONS (1)
  - No therapeutic response [None]

NARRATIVE: CASE EVENT DATE: 20150918
